FAERS Safety Report 6424083-2 (Version None)
Quarter: 2009Q4

REPORT INFORMATION
  Report Type: 
  Country: None (occurrence: None)
  Receive Date: 20091102
  Receipt Date: 20091020
  Transmission Date: 20100525
  Serious: Yes (Other)
  Sender: FDA-Public Use
  Company Number: PHEH2008US06330

PATIENT
  Sex: Female
  Weight: 45.351 kg

DRUGS (11)
  1. ZOMETA [Suspect]
     Indication: OSTEOPOROSIS
     Dosage: 3 MG/4 MG
     Dates: start: 20040322, end: 20051102
  2. PERIDEX [Concomitant]
  3. CLINDAMYCIN [Concomitant]
  4. TAMOXIFEN CITRATE [Concomitant]
  5. MULTIVITAMIN ^LAPPE^ [Concomitant]
  6. CALCIUM [Concomitant]
  7. FEMARA [Concomitant]
     Dosage: 2.5 , DAILY
  8. SIMVASTATIN [Concomitant]
     Dosage: 20 , DAILY
  9. FOLIC ACID [Concomitant]
     Dosage: 1 MG, DAILY
  10. ZANTAC [Concomitant]
     Dosage: 300 MG
     Dates: start: 20050218
  11. PRILOSEC [Concomitant]
     Dosage: 40 MG
     Dates: start: 20050218

REACTIONS (43)
  - ANHEDONIA [None]
  - ANXIETY [None]
  - AORTIC ARTERIOSCLEROSIS [None]
  - BONE DEBRIDEMENT [None]
  - BONE DENSITY DECREASED [None]
  - BONE DISORDER [None]
  - CHRONIC OBSTRUCTIVE PULMONARY DISEASE [None]
  - CHRONIC SINUSITIS [None]
  - DENTAL IMPLANTATION [None]
  - DIARRHOEA [None]
  - DISCOMFORT [None]
  - DYSPNOEA [None]
  - EMOTIONAL DISTRESS [None]
  - EUSTACHIAN TUBE DYSFUNCTION [None]
  - FEELING JITTERY [None]
  - FRACTURED SACRUM [None]
  - GINGIVAL BLEEDING [None]
  - GOITRE [None]
  - HEART RATE INCREASED [None]
  - HEART RATE IRREGULAR [None]
  - HYPOPHAGIA [None]
  - INFLUENZA [None]
  - INJURY [None]
  - ISCHAEMIA [None]
  - LIFE EXPECTANCY SHORTENED [None]
  - LIPIDS INCREASED [None]
  - MEDICAL DEVICE REMOVAL [None]
  - MITRAL VALVE INCOMPETENCE [None]
  - MYALGIA [None]
  - NODULE [None]
  - OROPHARYNGEAL PAIN [None]
  - OSTEOARTHRITIS [None]
  - OSTEOLYSIS [None]
  - OSTEOMYELITIS [None]
  - OSTEONECROSIS [None]
  - PAIN [None]
  - PAIN IN JAW [None]
  - PALPITATIONS [None]
  - PHYSICAL DISABILITY [None]
  - REFLUX OESOPHAGITIS [None]
  - RESPIRATORY DISORDER [None]
  - SCAR [None]
  - SPINAL OSTEOARTHRITIS [None]
